FAERS Safety Report 14203793 (Version 2)
Quarter: 2017Q4

REPORT INFORMATION
  Report Type: Spontaneous
  Country: US (occurrence: US)
  Receive Date: 20171120
  Receipt Date: 20171213
  Transmission Date: 20180321
  Serious: No
  Sender: FDA-Public Use
  Company Number: US-PFIZER INC-2017496043

PATIENT
  Age: 16 Year
  Sex: Male

DRUGS (2)
  1. LAMISIL [Suspect]
     Active Substance: TERBINAFINE HYDROCHLORIDE
     Dosage: 250 MG, ONCE A DAY (WITH FOOD)
     Route: 048
  2. EUCRISA [Suspect]
     Active Substance: CRISABOROLE
     Indication: DERMATITIS ATOPIC
     Dosage: TWICE A DAY (APPLY TO AFFECTED AREAS TWICE A DAY)
     Route: 061
     Dates: start: 20170822

REACTIONS (2)
  - Scab [Unknown]
  - Erythema [Recovering/Resolving]
